FAERS Safety Report 12598377 (Version 1)
Quarter: 2016Q3

REPORT INFORMATION
  Report Type: Spontaneous
  Country: US (occurrence: None)
  Receive Date: 20160726
  Receipt Date: 20160726
  Transmission Date: 20161109
  Serious: No
  Sender: FDA-Public Use
  Company Number: None

PATIENT
  Age: 62 Year
  Sex: Male

DRUGS (3)
  1. SOVALDI [Suspect]
     Active Substance: SOFOSBUVIR
     Route: 048
     Dates: start: 20160602, end: 20160702
  2. RIBASPHERE [Suspect]
     Active Substance: RIBAVIRIN
     Indication: HEPATITIS C
     Route: 048
     Dates: start: 20160602, end: 20160725
  3. DAKLINZA [Suspect]
     Active Substance: DACLATASVIR
     Route: 048
     Dates: start: 20160602, end: 20160725

REACTIONS (2)
  - Dyspnoea exertional [None]
  - Fatigue [None]

NARRATIVE: CASE EVENT DATE: 20160628
